FAERS Safety Report 21591330 (Version 1)
Quarter: 2022Q4

REPORT INFORMATION
  Report Type: Spontaneous
  Country: FR (occurrence: FR)
  Receive Date: 20221114
  Receipt Date: 20221114
  Transmission Date: 20230113
  Serious: Yes (Life-Threatening, Other)
  Sender: FDA-Public Use
  Company Number: None

PATIENT
  Age: 44 Year
  Sex: Female

DRUGS (14)
  1. KARDEGIC [Interacting]
     Active Substance: ASPIRIN DL-LYSINE
     Indication: Thrombosis prophylaxis
     Dosage: 1DF, QD
     Route: 048
     Dates: start: 20221002, end: 20221005
  2. PLAVIX [Interacting]
     Active Substance: CLOPIDOGREL BISULFATE
     Indication: Thrombosis prophylaxis
     Dosage: 1 DF QD
     Route: 048
     Dates: end: 20221002
  3. ELIQUIS [Interacting]
     Active Substance: APIXABAN
     Indication: Thrombosis
     Dosage: 1DF, QD
     Route: 048
     Dates: start: 20221004, end: 20221005
  4. ESOMEPRAZOLE [Concomitant]
     Active Substance: ESOMEPRAZOLE
     Dosage: 40MG,QD
     Route: 048
  5. BISOPROLOL FUMARATE [Concomitant]
     Active Substance: BISOPROLOL FUMARATE
     Dosage: 5MG, QD
     Route: 048
  6. DOLIPRANE [Concomitant]
     Active Substance: ACETAMINOPHEN
     Dosage: 1G, QD
     Route: 048
  7. CIPROFLOXACIN [Concomitant]
     Active Substance: CIPROFLOXACIN
     Dosage: 500MG, QD
     Route: 048
     Dates: start: 20220914, end: 20221005
  8. ACTRAPID [Concomitant]
     Active Substance: INSULIN HUMAN
     Dosage: 5IU, QD
     Route: 058
  9. TOUJEO [Concomitant]
     Active Substance: INSULIN GLARGINE
     Dosage: 18IU, QD
     Route: 058
  10. VANCOMYCIN [Concomitant]
     Active Substance: VANCOMYCIN
     Dosage: 1 G
     Route: 048
     Dates: start: 20220914, end: 20221005
  11. CEFTRIAXONE SODIUM [Concomitant]
     Active Substance: CEFTRIAXONE SODIUM
     Dosage: 2G, QD
     Dates: start: 20220914, end: 20221005
  12. OXAZEPAM [Concomitant]
     Active Substance: OXAZEPAM
     Dosage: 25MG,QD
     Route: 048
  13. CALCIUM CARBONATE [Concomitant]
     Active Substance: CALCIUM CARBONATE
     Dosage: 4DF, QD
     Route: 048
  14. POTASSIUM CHLORIDE [Concomitant]
     Active Substance: POTASSIUM CHLORIDE
     Dosage: 1.2G, QD
     Route: 048

REACTIONS (2)
  - Shock haemorrhagic [Recovered/Resolved]
  - Drug interaction [Recovered/Resolved]
